FAERS Safety Report 8032393-0 (Version None)
Quarter: 2012Q1

REPORT INFORMATION
  Report Type: 
  Country: None (occurrence: None)
  Receive Date: 20120105
  Receipt Date: 20111222
  Transmission Date: 20120608
  Serious: Yes (Death)
  Sender: FDA-Public Use
  Company Number: 1000026593

PATIENT
  Age: 90 Year
  Sex: Female

DRUGS (6)
  1. PREVISCAN (FLUINDIONE) (TABLETS) [Suspect]
     Dosage: DAILY DOSE ACCRODING TO INR, ORAL
     Route: 048
     Dates: end: 20110412
  2. FOSAMAX (ALENDRONATE SODIUM) (10 MILLIGRAM, TABLETS) (ALENDRONATE SODI [Concomitant]
  3. CACIT (CALCIUM CARBONATE, CHOLECALCIFEROL0 (500 MILLIGRAM) (CALCIUM CA [Concomitant]
  4. ARICEPT (DEONEPEZIL HYDROCHLORIDE) (5 MILLIGRAM, TABLETS) (DONEPEZIL H [Concomitant]
  5. ESCITALOPRAM [Suspect]
     Dosage: 1 DOSAGE FORM (1 DOSAGE FORMS, 1 IN 1 D), ORAL
     Route: 048
     Dates: end: 20110412
  6. STEROGYL (ERGOCALCIFEROL) (DROPS) (ERGOCALCIFEROL) [Concomitant]

REACTIONS (4)
  - HAEMATOMA [None]
  - CEREBROVASCULAR ACCIDENT [None]
  - INTERNATIONAL NORMALISED RATIO INCREASED [None]
  - GENERAL PHYSICAL HEALTH DETERIORATION [None]
